FAERS Safety Report 5305151-5 (Version None)
Quarter: 2007Q2

REPORT INFORMATION
  Report Type: 
  Country: None (occurrence: None)
  Receive Date: 20070416
  Receipt Date: 20070405
  Transmission Date: 20071010
  Serious: Yes (Hospitalization, Other)
  Sender: FDA-Public Use
  Company Number: 163-20785-07030631

PATIENT
  Age: 27 Year
  Sex: Male

DRUGS (2)
  1. THALOMID [Suspect]
     Indication: MULTIPLE MYELOMA
     Dosage: 200 MG, 4 IN 1 D, ORAL
     Route: 048
     Dates: start: 20070123, end: 20070215
  2. COUMADIN [Concomitant]

REACTIONS (3)
  - DRUG INTERACTION [None]
  - HAEMOPTYSIS [None]
  - PULMONARY ALVEOLAR HAEMORRHAGE [None]
